FAERS Safety Report 14995265 (Version 1)
Quarter: 2018Q2

REPORT INFORMATION
  Report Type: Spontaneous
  Country: US (occurrence: US)
  Receive Date: 20180611
  Receipt Date: 20180611
  Transmission Date: 20180711
  Serious: Yes (Other)
  Sender: FDA-Public Use
  Company Number: US-SA-2017SA250875

PATIENT
  Age: 55 Year
  Sex: Female
  Weight: 49.8 kg

DRUGS (12)
  1. TAXOTERE [Suspect]
     Active Substance: DOCETAXEL
     Dosage: 119 MG,Q3W
     Route: 051
     Dates: start: 20140213, end: 20140213
  2. PARAPLATIN [Concomitant]
     Active Substance: CARBOPLATIN
     Dosage: 659 MG,QCY
     Route: 065
     Dates: start: 20131031, end: 20131031
  3. CARBOPLATIN. [Concomitant]
     Active Substance: CARBOPLATIN
     Dosage: 659 MG
     Dates: start: 20131031
  4. TAXOTERE [Suspect]
     Active Substance: DOCETAXEL
     Indication: BREAST CANCER FEMALE
     Dosage: 113 MG,Q3W
     Route: 051
     Dates: start: 20131031, end: 20131031
  5. LORAZEPAM. [Concomitant]
     Active Substance: LORAZEPAM
  6. PARAPLATIN [Concomitant]
     Active Substance: CARBOPLATIN
     Dosage: 709 MG,QCY
     Route: 065
     Dates: start: 20140213, end: 20140213
  7. NEULASTA [Concomitant]
     Active Substance: PEGFILGRASTIM
  8. ONDANSETRON HYDROCHLORIDE. [Concomitant]
     Active Substance: ONDANSETRON HYDROCHLORIDE
  9. TRASTUZUMAB. [Concomitant]
     Active Substance: TRASTUZUMAB
  10. PROLIA [Concomitant]
     Active Substance: DENOSUMAB
  11. DEXAMETHASONE. [Concomitant]
     Active Substance: DEXAMETHASONE
  12. OMEPRAZOLE. [Concomitant]
     Active Substance: OMEPRAZOLE

REACTIONS (2)
  - Alopecia [Recovering/Resolving]
  - Psychological trauma [Unknown]

NARRATIVE: CASE EVENT DATE: 20140813
